FAERS Safety Report 7502431-X (Version None)
Quarter: 2011Q2

REPORT INFORMATION
  Report Type: 
  Country: None (occurrence: None)
  Receive Date: 20110525
  Receipt Date: 20110523
  Transmission Date: 20111010
  Serious: Yes (Other)
  Sender: FDA-Public Use
  Company Number: AU-PFIZER INC-2011097350

PATIENT
  Age: 45 Year
  Sex: Female
  Weight: 150 kg

DRUGS (8)
  1. RABEPRAZOLE SODIUM [Concomitant]
     Dosage: 20 MG, DAILY
     Route: 048
  2. IRBESARTAN + HYDROCHLOROTHIAZIDE [Concomitant]
     Dosage: 150/12.5 MG, DAILY
     Route: 048
  3. DIABEX S.R. [Concomitant]
     Dosage: 1 G, 2X/DAY
  4. VARENICLINE TARTRATE [Suspect]
     Indication: SMOKING CESSATION THERAPY
     Dosage: UNK
     Dates: end: 20110415
  5. PAROXETINE [Concomitant]
     Dosage: 20 MG, DAILY
     Route: 048
  6. MINAX [Concomitant]
     Dosage: 50 MG, DAILY
     Route: 048
  7. DIAMICRON MR [Concomitant]
     Dosage: 30 MG, UNK
  8. LIPITOR [Concomitant]
     Dosage: 20 MG, DAILY
     Route: 048

REACTIONS (6)
  - AGITATION [None]
  - TACHYCARDIA [None]
  - HYPERTENSION [None]
  - ANXIETY [None]
  - CRYING [None]
  - EMOTIONAL DISTRESS [None]
